FAERS Safety Report 16070846 (Version 4)
Quarter: 2019Q3

REPORT INFORMATION
  Report Type: Spontaneous
  Country: JP (occurrence: JP)
  Receive Date: 20190314
  Receipt Date: 20190929
  Transmission Date: 20191004
  Serious: Yes (Death, Hospitalization)
  Sender: FDA-Public Use
  Company Number: PHHY2019JP056295

PATIENT
  Age: 81 Year
  Sex: Female

DRUGS (3)
  1. AFINITOR [Suspect]
     Active Substance: EVEROLIMUS
     Indication: CLEAR CELL RENAL CELL CARCINOMA
     Dosage: 10 MG, QD
     Route: 065
  2. METHYLPREDNISOLONE. [Suspect]
     Active Substance: METHYLPREDNISOLONE
     Dosage: UNK (TWO MORE COURSES)
     Route: 065
  3. METHYLPREDNISOLONE. [Suspect]
     Active Substance: METHYLPREDNISOLONE
     Indication: INTERSTITIAL LUNG DISEASE
     Dosage: 1 G, QD
     Route: 065

REACTIONS (7)
  - Pericardial effusion [Fatal]
  - Interstitial lung disease [Fatal]
  - Dyspnoea [Fatal]
  - Pyrexia [Fatal]
  - Alkalosis [Fatal]
  - Respiratory failure [Fatal]
  - Drug ineffective [Unknown]
